FAERS Safety Report 5736374-9 (Version None)
Quarter: 2008Q2

REPORT INFORMATION
  Report Type: 
  Country: None (occurrence: None)
  Receive Date: 20080509
  Receipt Date: 20080425
  Transmission Date: 20081010
  Serious: Yes (Hospitalization)
  Sender: FDA-Public Use
  Company Number: 2008S1005197

PATIENT
  Age: 66 Year
  Sex: Female
  Weight: 58.0604 kg

DRUGS (9)
  1. FENTANYL TRANSDERMAL SYSTEM [Suspect]
     Indication: ARTHRALGIA
     Dosage: 75 UG, EVERY HOUR, TRANSDERMAL
     Route: 062
     Dates: start: 20080301, end: 20080410
  2. FENTANYL TRANSDERMAL SYSTEM [Suspect]
     Indication: BACK PAIN
     Dosage: 75 UG, EVERY HOUR, TRANSDERMAL
     Route: 062
     Dates: start: 20080301, end: 20080410
  3. FENTANYL TRANSDERMAL SYSTEM [Suspect]
     Indication: NECK PAIN
     Dosage: 75 UG, EVERY HOUR, TRANSDERMAL
     Route: 062
     Dates: start: 20080301, end: 20080410
  4. FENTANYL TRANSDERMAL SYSTEM [Suspect]
     Indication: ARTHRALGIA
     Dosage: 75 UG, EVERY HOUR, TRANSDERMAL
     Route: 062
     Dates: start: 20080410
  5. FENTANYL TRANSDERMAL SYSTEM [Suspect]
     Indication: BACK PAIN
     Dosage: 75 UG, EVERY HOUR, TRANSDERMAL
     Route: 062
     Dates: start: 20080410
  6. FENTANYL TRANSDERMAL SYSTEM [Suspect]
     Indication: NECK PAIN
     Dosage: 75 UG, EVERY HOUR, TRANSDERMAL
     Route: 062
     Dates: start: 20080410
  7. PROPOXYPHENE HCL AND ACETAMINOPHEN [Concomitant]
  8. VICODIN [Concomitant]
  9. GABAPENTIN [Concomitant]

REACTIONS (4)
  - INADEQUATE ANALGESIA [None]
  - PAIN [None]
  - PHARMACEUTICAL PRODUCT COMPLAINT [None]
  - TREATMENT NONCOMPLIANCE [None]
